FAERS Safety Report 16851908 (Version 1)
Quarter: 2019Q3

REPORT INFORMATION
  Report Type: Spontaneous
  Country: US (occurrence: US)
  Receive Date: 20190925
  Receipt Date: 20190925
  Transmission Date: 20191005
  Serious: No
  Sender: FDA-Public Use
  Company Number: US-SCILEX PHARMACEUTICALS INC.-2019SCX00045

PATIENT
  Sex: Female

DRUGS (1)
  1. ZTLIDO [Suspect]
     Active Substance: LIDOCAINE
     Dosage: 1 DOSAGE UNITS, ONCE
     Route: 061
     Dates: start: 2019, end: 2019

REACTIONS (1)
  - Application site erosion [Unknown]

NARRATIVE: CASE EVENT DATE: 2019
